FAERS Safety Report 9098427 (Version 1)
Quarter: 2013Q1

REPORT INFORMATION
  Report Type: Spontaneous
  Country: DE (occurrence: DE)
  Receive Date: 20130213
  Receipt Date: 20130213
  Transmission Date: 20140127
  Serious: Yes (Other)
  Sender: FDA-Public Use
  Company Number: DE-009507513-1302DEU004096

PATIENT
  Age: 62 Year
  Sex: Male

DRUGS (1)
  1. INEGY [Suspect]
     Indication: HYPERCHOLESTEROLAEMIA
     Dosage: 10MG/40MG, QD
     Route: 048
     Dates: start: 201209, end: 20130118

REACTIONS (2)
  - Heart valve operation [Unknown]
  - Arrhythmia [Recovered/Resolved]
